FAERS Safety Report 20743495 (Version 1)
Quarter: 2022Q2

REPORT INFORMATION
  Report Type: Spontaneous
  Country: FR (occurrence: FR)
  Receive Date: 20220425
  Receipt Date: 20220425
  Transmission Date: 20220720
  Serious: Yes (Other)
  Sender: FDA-Public Use
  Company Number: FR-SANOFI-00992034

PATIENT
  Sex: Male

DRUGS (1)
  1. TOUJEO [Suspect]
     Active Substance: INSULIN GLARGINE
     Indication: Diabetes mellitus
     Dosage: 40 IU, QD
     Dates: start: 20200806

REACTIONS (4)
  - Hepatitis B [Unknown]
  - Renal failure [Unknown]
  - Device issue [Unknown]
  - Accidental exposure to product [Unknown]
